FAERS Safety Report 6154006-5 (Version None)
Quarter: 2009Q2

REPORT INFORMATION
  Report Type: 
  Country: None (occurrence: None)
  Receive Date: 20090414
  Receipt Date: 20090406
  Transmission Date: 20091009
  Serious: Yes (Hospitalization)
  Sender: FDA-Public Use
  Company Number: PHEH2008US10749

PATIENT
  Age: 86 Year
  Sex: Male
  Weight: 54.422 kg

DRUGS (8)
  1. EXELON [Suspect]
     Indication: DEMENTIA ALZHEIMER'S TYPE
     Dosage: 9.5 MG, QD
     Route: 062
     Dates: start: 20080101
  2. NORVASC [Concomitant]
     Dosage: 2.5 MG, TID
     Route: 048
  3. METFORMIN HCL [Concomitant]
     Dosage: 500 MG, BID
     Route: 048
  4. PRAVACHOL [Concomitant]
     Dosage: 20 MG, QD
     Route: 048
  5. ASPIRIN [Concomitant]
     Dosage: UNK
  6. ACTOS [Concomitant]
     Dosage: 15 MG, QD
     Route: 048
  7. ARICEPT [Concomitant]
     Dosage: 10 MG, QD
     Route: 048
     Dates: start: 20060101
  8. HYDROCHLOROTHIAZIDE [Concomitant]
     Dosage: 12.5 MG, QD
     Route: 048

REACTIONS (10)
  - DIZZINESS [None]
  - FALL [None]
  - FEELING ABNORMAL [None]
  - HEART RATE DECREASED [None]
  - LOSS OF CONSCIOUSNESS [None]
  - NAUSEA [None]
  - ORTHOSTATIC HYPOTENSION [None]
  - PRESYNCOPE [None]
  - SKIN LACERATION [None]
  - SYNCOPE [None]
